FAERS Safety Report 4567416-4 (Version None)
Quarter: 2005Q1

REPORT INFORMATION
  Report Type: 
  Country: None (occurrence: None)
  Receive Date: 20050127
  Receipt Date: 20050114
  Transmission Date: 20050727
  Serious: Yes (Hospitalization)
  Sender: FDA-Public Use
  Company Number: 2005SE00083

PATIENT
  Age: 58 Year
  Sex: Male

DRUGS (3)
  1. CRESTOR [Suspect]
     Indication: HYPERCHOLESTEROLAEMIA
     Dosage: 10 MG DAILY PO
     Route: 048
     Dates: start: 20030101, end: 20050104
  2. NORVASC [Concomitant]
  3. SPARKAL [Concomitant]

REACTIONS (3)
  - CONDITION AGGRAVATED [None]
  - LEIOMYOSARCOMA [None]
  - LIPOSARCOMA [None]
